FAERS Safety Report 20005021 (Version 1)
Quarter: 2021Q4

REPORT INFORMATION
  Report Type: Spontaneous
  Country: US (occurrence: US)
  Receive Date: 20211027
  Receipt Date: 20211027
  Transmission Date: 20220303
  Serious: Yes (unspecified)
  Sender: FDA-Public Use
  Company Number: None

PATIENT
  Age: 27 Year
  Sex: Female
  Weight: 100.57 kg

DRUGS (1)
  1. CONCERTA [Suspect]
     Active Substance: METHYLPHENIDATE HYDROCHLORIDE
     Indication: Attention deficit hyperactivity disorder
     Dates: start: 20200917, end: 20210731

REACTIONS (13)
  - Manufacturing issue [None]
  - Cardiac disorder [None]
  - Chest discomfort [None]
  - Palpitations [None]
  - Heart rate increased [None]
  - Angina pectoris [None]
  - Overdose [None]
  - Mood altered [None]
  - Anxiety [None]
  - Anger [None]
  - Depressed mood [None]
  - Depression [None]
  - Emotional disorder [None]
